FAERS Safety Report 7154961 (Version 2)
Quarter: 2013Q2

REPORT INFORMATION
  Report Type: Report from Study
  Country: US (occurrence: US)
  Receive Date: 20091022
  Receipt Date: 20130605
  Transmission Date: 20140414
  Serious: Yes (Hospitalization, Other)
  Sender: FDA-Public Use
  Company Number: US-RB-022003-09

PATIENT
  Age: 62 Year
  Sex: Female

DRUGS (6)
  1. SUBOXONE [Suspect]
     Indication: PAIN
     Dosage: TOOK 1/2 OF A PILL, NO OTHER DOSING DETAILS PROVIDED
     Route: 065
  2. SUBOXONE [Suspect]
     Route: 060
  3. SUBOXONE [Suspect]
     Route: 060
  4. SUBOXONE [Suspect]
     Dosage: VARIOUS TAPERED DOSES
     Route: 060
  5. SUBOXONE [Suspect]
     Route: 060
  6. HYDROCODONE [Concomitant]
     Indication: PAIN
     Dosage: DOSING DETAILS UNKNOWN
     Route: 065

REACTIONS (7)
  - Amnesia [Recovered/Resolved]
  - Malaise [Recovered/Resolved]
  - Panic attack [Recovered/Resolved]
  - Nausea [Recovered/Resolved]
  - Off label use [Not Recovered/Not Resolved]
  - Underdose [Unknown]
  - Drug abuse [Unknown]
